FAERS Safety Report 7157914-1 (Version None)
Quarter: 2010Q4

REPORT INFORMATION
  Report Type: 
  Country: None (occurrence: None)
  Receive Date: 20101214
  Receipt Date: 20101209
  Transmission Date: 20110411
  Serious: Yes (Other)
  Sender: FDA-Public Use
  Company Number: US-MERCK-1012USA01885

PATIENT
  Sex: Female

DRUGS (2)
  1. FOSAMAX [Suspect]
     Route: 048
     Dates: start: 20020101, end: 20060101
  2. FOSAMAX [Suspect]
     Route: 048
     Dates: start: 20100101, end: 20100701

REACTIONS (1)
  - FEMUR FRACTURE [None]
